FAERS Safety Report 5191205-3 (Version None)
Quarter: 2006Q4

REPORT INFORMATION
  Report Type: 
  Country: None (occurrence: None)
  Receive Date: 20061226
  Receipt Date: 20061226
  Transmission Date: 20070319
  Serious: Yes (Death)
  Sender: FDA-Public Use
  Company Number: None

PATIENT
  Age: 79 Year
  Sex: Female
  Weight: 36.2878 kg

DRUGS (7)
  1. CISAPRIDE [Suspect]
     Indication: IMPAIRED GASTRIC EMPTYING
     Dosage: 20 MG TID ORALLY
     Route: 048
     Dates: start: 19940101, end: 20061027
  2. PROPRANOLOL [Concomitant]
  3. PROTONIX [Concomitant]
  4. MORPHINE [Concomitant]
  5. ACETAMINOPHINE/CODIENE [Concomitant]
  6. FUROSEMIDE [Concomitant]
     Route: 048
  7. POTASSIUM ACETATE [Concomitant]

REACTIONS (2)
  - OVARIAN CANCER [None]
  - PERITONEAL CARCINOMA [None]
